FAERS Safety Report 22127047 (Version 1)
Quarter: 2023Q1

REPORT INFORMATION
  Report Type: Spontaneous
  Country: US (occurrence: US)
  Receive Date: 20230322
  Receipt Date: 20230322
  Transmission Date: 20230417
  Serious: No
  Sender: FDA-Public Use
  Company Number: US-APIL-2308935US

PATIENT
  Sex: Female
  Weight: 68.95 kg

DRUGS (1)
  1. PREDNISOLONE ACETATE [Suspect]
     Active Substance: PREDNISOLONE ACETATE
     Indication: Product used for unknown indication
     Dosage: 1 GTT, QID

REACTIONS (2)
  - Poor quality product administered [Unknown]
  - Product delivery mechanism issue [Unknown]
